FAERS Safety Report 5234874-1 (Version None)
Quarter: 2007Q1

REPORT INFORMATION
  Report Type: 
  Country: None (occurrence: None)
  Receive Date: 20070209
  Receipt Date: 20070205
  Transmission Date: 20070707
  Serious: Yes (Congenital Anomaly)
  Sender: FDA-Public Use
  Company Number: ES-MERCK-0702ESP00010

PATIENT
  Age: 0 Day
  Sex: Male
  Weight: 3 kg

DRUGS (6)
  1. ALDOMET [Suspect]
     Route: 064
     Dates: start: 20060401, end: 20061227
  2. NITROFURANTOIN [Suspect]
     Route: 064
     Dates: start: 20060901
  3. FOSFOMYCIN [Suspect]
     Route: 064
     Dates: start: 20060801
  4. INSULIN HUMAN, ISOPHANE [Suspect]
     Route: 064
     Dates: start: 20060401, end: 20061227
  5. CYANOCOBALAMIN AND FOLIC ACID [Suspect]
     Route: 064
     Dates: start: 20060401, end: 20061227
  6. POTASSIUM IODIDE [Suspect]
     Route: 064
     Dates: start: 20060401, end: 20061227

REACTIONS (2)
  - CONGENITAL HAND MALFORMATION [None]
  - DRUG EXPOSURE DURING PREGNANCY [None]
